FAERS Safety Report 8544089-7 (Version None)
Quarter: 2012Q3

REPORT INFORMATION
  Report Type: 
  Country: None (occurrence: None)
  Receive Date: 20120727
  Receipt Date: 20120711
  Transmission Date: 20120928
  Serious: No
  Sender: FDA-Public Use
  Company Number: US-009507513-1207USA007990

PATIENT

DRUGS (3)
  1. CLARITIN [Suspect]
     Dosage: 5 MG, ONCE
     Dates: start: 20120710
  2. CLARITIN [Suspect]
     Indication: HYPERSENSITIVITY
     Dosage: 5 MG, QD
     Route: 048
     Dates: start: 20120701
  3. CLARITIN [Suspect]
     Dosage: 5 MG, ONCE
     Dates: start: 20120710

REACTIONS (1)
  - ACCIDENTAL OVERDOSE [None]
